FAERS Safety Report 5449916-8 (Version None)
Quarter: 2007Q3

REPORT INFORMATION
  Report Type: 
  Country: None (occurrence: None)
  Receive Date: 20070912
  Receipt Date: 20070724
  Transmission Date: 20080115
  Serious: Yes (Hospitalization, Other)
  Sender: FDA-Public Use
  Company Number: EE-NOVOPROD-265891

PATIENT
  Sex: Female
  Weight: 54 kg

DRUGS (3)
  1. LEVEMIR [Suspect]
     Indication: DIABETES MELLITUS
     Dosage: 24-32 MG, QD
     Route: 058
     Dates: start: 20070130
  2. NOVORAPID [Suspect]
     Dosage: 26-44 MG, QD
     Route: 058
     Dates: start: 20070116
  3. CANIFUG [Concomitant]
     Indication: VAGINAL CANDIDIASIS
     Dosage: .1 UNK, QD
     Route: 067
     Dates: start: 20070525, end: 20070530

REACTIONS (4)
  - POLYHYDRAMNIOS [None]
  - PRE-ECLAMPSIA [None]
  - PYELONEPHRITIS [None]
  - VAGINAL CANDIDIASIS [None]
